FAERS Safety Report 7343683-9 (Version None)
Quarter: 2011Q1

REPORT INFORMATION
  Report Type: 
  Country: None (occurrence: None)
  Receive Date: 20110310
  Receipt Date: 20101013
  Transmission Date: 20110831
  Serious: No
  Sender: FDA-Public Use
  Company Number: A0886279A

PATIENT
  Age: 30 Year
  Sex: Male

DRUGS (1)
  1. NICORETTE [Suspect]
     Dates: start: 20101013, end: 20101013

REACTIONS (4)
  - ERUCTATION [None]
  - FLATULENCE [None]
  - ORAL DISCOMFORT [None]
  - DYSPEPSIA [None]
